FAERS Safety Report 6569071-0 (Version None)
Quarter: 2010Q1

REPORT INFORMATION
  Report Type: 
  Country: None (occurrence: None)
  Receive Date: 20100203
  Receipt Date: 20100126
  Transmission Date: 20100710
  Serious: Yes (Other)
  Sender: FDA-Public Use
  Company Number: DE-PFIZER INC-2009314420

PATIENT
  Age: 39 Year
  Sex: Male

DRUGS (1)
  1. VIAGRA [Suspect]
     Dosage: 1/2 OF 50 MG
     Route: 048
     Dates: start: 20091219, end: 20091219

REACTIONS (4)
  - CARDIAC FLUTTER [None]
  - DRUG INEFFECTIVE [None]
  - ERYTHEMA [None]
  - HYPERHIDROSIS [None]
